FAERS Safety Report 17141954 (Version 1)
Quarter: 2019Q4

REPORT INFORMATION
  Report Type: Spontaneous
  Country: IT (occurrence: IT)
  Receive Date: 20191211
  Receipt Date: 20191211
  Transmission Date: 20200122
  Serious: Yes (Hospitalization)
  Sender: FDA-Public Use
  Company Number: IT-ASTRAZENECA-2019SF74069

PATIENT
  Age: 64 Year
  Sex: Female

DRUGS (4)
  1. QUETIAPINE FUMARATE. [Suspect]
     Active Substance: QUETIAPINE FUMARATE
     Indication: PRODUCT USED FOR UNKNOWN INDICATION
     Dosage: 10 DF, TOTAL
     Route: 048
     Dates: start: 20190417, end: 20190417
  2. VALDORM (FLURAZEPAM HYDROCHLORIDE) [Suspect]
     Active Substance: FLURAZEPAM HYDROCHLORIDE
     Indication: INSOMNIA
     Dosage: 45 DF, TOTAL
     Route: 048
     Dates: start: 20190417, end: 20190417
  3. LITHIUM. [Suspect]
     Active Substance: LITHIUM
     Dosage: 10 DF, TOTAL
     Route: 048
     Dates: start: 20190417, end: 20190417
  4. LITHIOFOR [Suspect]
     Active Substance: LITHIUM SULFATE
     Indication: PRODUCT USED FOR UNKNOWN INDICATION
     Dosage: 10 DF, TOTAL
     Route: 048
     Dates: start: 20190417, end: 20190417

REACTIONS (3)
  - Overdose [Recovered/Resolved]
  - Sopor [Recovered/Resolved]
  - Drug abuse [Recovered/Resolved]

NARRATIVE: CASE EVENT DATE: 20190417
